FAERS Safety Report 16188854 (Version 2)
Quarter: 2019Q2

REPORT INFORMATION
  Report Type: Spontaneous
  Country: GB (occurrence: GB)
  Receive Date: 20190412
  Receipt Date: 20190413
  Transmission Date: 20190711
  Serious: Yes (Other)
  Sender: FDA-Public Use
  Company Number: GB-ROCHE-2300856

PATIENT
  Sex: Female

DRUGS (1)
  1. XOLAIR [Suspect]
     Active Substance: OMALIZUMAB
     Indication: ASTHMA
     Dosage: 375 MG, BIW
     Route: 065

REACTIONS (7)
  - Heart rate increased [Unknown]
  - Feeling abnormal [Unknown]
  - Injection site reaction [Unknown]
  - Tachycardia [Unknown]
  - Nausea [Unknown]
  - Panic reaction [Unknown]
  - Abdominal pain upper [Unknown]
